FAERS Safety Report 14586819 (Version 4)
Quarter: 2020Q2

REPORT INFORMATION
  Report Type: Spontaneous
  Country: US (occurrence: US)
  Receive Date: 20180301
  Receipt Date: 20200626
  Transmission Date: 20200713
  Serious: Yes (Hospitalization, Other)
  Sender: FDA-Public Use
  Company Number: US-PFIZER INC-2018085158

PATIENT
  Age: 56 Year
  Sex: Female
  Weight: 86 kg

DRUGS (2)
  1. PRISTIQ EXTENDED-RELEASE [Suspect]
     Active Substance: DESVENLAFAXINE SUCCINATE
     Indication: ANXIETY
  2. PRISTIQ EXTENDED-RELEASE [Suspect]
     Active Substance: DESVENLAFAXINE SUCCINATE
     Indication: DEPRESSION
     Dosage: 100 MG, 1X/DAY (IN THE MORNING WITH BREAKFAST)
     Route: 048
     Dates: start: 2010

REACTIONS (12)
  - Arterial occlusive disease [Not Recovered/Not Resolved]
  - Alcohol use [Unknown]
  - Blood lactic acid increased [Unknown]
  - Withdrawal syndrome [Unknown]
  - Dry eye [Unknown]
  - Malaise [Unknown]
  - Stress [Unknown]
  - Suicidal ideation [Unknown]
  - Dyspnoea [Unknown]
  - Eyelid function disorder [Unknown]
  - Feeling abnormal [Unknown]
  - Cerebrovascular accident [Not Recovered/Not Resolved]

NARRATIVE: CASE EVENT DATE: 20200323
